FAERS Safety Report 12218388 (Version 2)
Quarter: 2016Q1

REPORT INFORMATION
  Report Type: Spontaneous
  Country: US (occurrence: US)
  Receive Date: 20160329
  Receipt Date: 20160330
  Transmission Date: 20160526
  Serious: No
  Sender: FDA-Public Use
  Company Number: US-009507513-1603USA012443

PATIENT
  Age: 28 Year
  Sex: Female
  Weight: 82.54 kg

DRUGS (1)
  1. NEXPLANON [Suspect]
     Active Substance: ETONOGESTREL
     Indication: CONTRACEPTION
     Dosage: 1 ROD/3 YEARS; RIGHT ARM
     Route: 059
     Dates: start: 20150928

REACTIONS (2)
  - Menstruation delayed [Unknown]
  - Menstruation normal [Unknown]

NARRATIVE: CASE EVENT DATE: 201603
